FAERS Safety Report 6231487-X (Version None)
Quarter: 2009Q2

REPORT INFORMATION
  Report Type: 
  Country: None (occurrence: None)
  Receive Date: 20090616
  Receipt Date: 20090608
  Transmission Date: 20091009
  Serious: Yes (Disabling)
  Sender: FDA-Public Use
  Company Number: A0789392A

PATIENT
  Age: 61 Year
  Sex: Female

DRUGS (2)
  1. LOVAZA [Suspect]
     Dosage: 2TAB TWICE PER DAY
     Route: 048
     Dates: start: 20090413, end: 20090601
  2. SYNTHROID [Concomitant]

REACTIONS (7)
  - ALOPECIA [None]
  - BACK PAIN [None]
  - BLISTER [None]
  - GAIT DISTURBANCE [None]
  - HAIR TEXTURE ABNORMAL [None]
  - MUSCULOSKELETAL STIFFNESS [None]
  - RASH VESICULAR [None]
